FAERS Safety Report 7705638-1 (Version None)
Quarter: 2011Q3

REPORT INFORMATION
  Report Type: 
  Country: None (occurrence: None)
  Receive Date: 20110824
  Receipt Date: 20110818
  Transmission Date: 20111222
  Serious: Yes (Other)
  Sender: FDA-Public Use
  Company Number: JP-SANOFI-AVENTIS-2010SA047342

PATIENT
  Age: 66 Year
  Sex: Female
  Weight: 52 kg

DRUGS (9)
  1. TAXOTERE [Suspect]
     Route: 042
     Dates: start: 20100709
  2. TRASTUZUMAB [Concomitant]
     Dosage: CYCLE:2-4
     Route: 042
     Dates: start: 20100528, end: 20100709
  3. TAXOTERE [Suspect]
     Route: 042
     Dates: start: 20100528
  4. CYCLOPHOSPHAMIDE [Concomitant]
     Dosage: CYCLE:1-4
     Route: 042
     Dates: start: 20100507, end: 20100709
  5. TAXOTERE [Suspect]
     Route: 042
     Dates: start: 20100507
  6. TAXOTERE [Suspect]
     Route: 042
     Dates: start: 20100618
  7. DEXAMETHASONE SODIUM PHOSPHATE [Concomitant]
     Route: 042
     Dates: start: 20100507, end: 20100709
  8. GRANISETRON [Concomitant]
     Route: 042
     Dates: start: 20100507, end: 20100709
  9. TRASTUZUMAB [Concomitant]
     Route: 042
     Dates: start: 20100507, end: 20100507

REACTIONS (1)
  - INTERSTITIAL LUNG DISEASE [None]
